FAERS Safety Report 9021298 (Version 1)
Quarter: 2013Q1

REPORT INFORMATION
  Report Type: Spontaneous
  Country: US (occurrence: US)
  Receive Date: 20130119
  Receipt Date: 20130119
  Transmission Date: 20140127
  Serious: No
  Sender: FDA-Public Use
  Company Number: US-ALLERGAN-1201357US

PATIENT
  Age: 61 Year
  Sex: Female

DRUGS (3)
  1. BOTOX? [Suspect]
     Indication: HEADACHE
     Dosage: UNK
     Route: 030
     Dates: start: 20120117, end: 20120117
  2. BOTOX? [Suspect]
     Indication: MIGRAINE
     Dosage: UNK
     Dates: start: 201003, end: 201003
  3. THYROID MEDICATION [Concomitant]
     Indication: PRODUCT USED FOR UNKNOWN INDICATION
     Dosage: 5 MG, UNK
     Route: 048

REACTIONS (2)
  - Alopecia [Unknown]
  - Headache [Not Recovered/Not Resolved]
